FAERS Safety Report 8602860-7 (Version None)
Quarter: 2012Q3

REPORT INFORMATION
  Report Type: 
  Country: None (occurrence: None)
  Receive Date: 20120817
  Receipt Date: 20120810
  Transmission Date: 20120928
  Serious: Yes (Death)
  Sender: FDA-Public Use
  Company Number: US-GLAXOSMITHKLINE-A0989086A

PATIENT
  Age: 47 Year
  Sex: Female

DRUGS (3)
  1. ARIXTRA [Suspect]
     Indication: DEEP VEIN THROMBOSIS
     Dosage: 5MG PER DAY
     Route: 058
     Dates: start: 20120701
  2. METHADONE HYDROCHLORIDE [Concomitant]
  3. MORPHINE [Concomitant]

REACTIONS (1)
  - BILE DUCT CANCER [None]
